FAERS Safety Report 25644069 (Version 1)
Quarter: 2025Q3

REPORT INFORMATION
  Report Type: Spontaneous
  Country: US (occurrence: US)
  Receive Date: 20250805
  Receipt Date: 20250805
  Transmission Date: 20251021
  Serious: No
  Sender: GLAXOSMITHKLINE
  Company Number: US-GSK-US2025AMR087740

PATIENT
  Sex: Female
  Weight: 71.655 kg

DRUGS (1)
  1. BENLYSTA [Suspect]
     Active Substance: BELIMUMAB
     Indication: Product used for unknown indication
     Dosage: 200 MG, WE, 200 MG/1 ML AUTO INJECTOR4^S

REACTIONS (1)
  - Headache [Not Recovered/Not Resolved]
